FAERS Safety Report 5614701-0 (Version None)
Quarter: 2008Q1

REPORT INFORMATION
  Report Type: 
  Country: None (occurrence: None)
  Receive Date: 20080131
  Receipt Date: 20080116
  Transmission Date: 20080703
  Serious: Yes (Other)
  Sender: FDA-Public Use
  Company Number: S08-CAN-00290-01

PATIENT
  Age: 30 Year
  Sex: Female

DRUGS (2)
  1. ESCITALOPRAM [Suspect]
     Indication: PREMENSTRUAL SYNDROME
     Dosage: 20 MG QD PO
     Route: 048
     Dates: end: 20071201
  2. BIRTH CONTROL PILLS (NOS) [Concomitant]

REACTIONS (1)
  - COLITIS ULCERATIVE [None]
